FAERS Safety Report 5646770-6 (Version None)
Quarter: 2008Q1

REPORT INFORMATION
  Report Type: 
  Country: None (occurrence: None)
  Receive Date: 20080229
  Receipt Date: 20080229
  Transmission Date: 20080703
  Serious: Yes (Other)
  Sender: FDA-Public Use
  Company Number: None

PATIENT
  Sex: Male

DRUGS (2)
  1. MS CONTIN [Suspect]
     Indication: BACK PAIN
     Dosage: 30 MG ONCE PO DAILY PO 60 MG ONCE PO BID PO
     Route: 048
  2. MS CONTIN [Suspect]
     Indication: NECK PAIN
     Dosage: 30 MG ONCE PO DAILY PO 60 MG ONCE PO BID PO
     Route: 048

REACTIONS (3)
  - PHARMACEUTICAL PRODUCT COMPLAINT [None]
  - RETCHING [None]
  - VOMITING [None]
